FAERS Safety Report 9017287 (Version 1)
Quarter: 2013Q1

REPORT INFORMATION
  Report Type: Spontaneous
  Country: US (occurrence: US)
  Receive Date: 20130117
  Receipt Date: 20130117
  Transmission Date: 20140127
  Serious: No
  Sender: FDA-Public Use
  Company Number: US-PFIZER INC-2013014757

PATIENT
  Age: 91 Year
  Sex: 0

DRUGS (1)
  1. LATANOPROST [Suspect]
     Dosage: UNK

REACTIONS (2)
  - Nervousness [Unknown]
  - Product packaging quantity issue [Unknown]
